FAERS Safety Report 5402372-8 (Version None)
Quarter: 2007Q3

REPORT INFORMATION
  Report Type: 
  Country: None (occurrence: None)
  Receive Date: 20070801
  Receipt Date: 20070723
  Transmission Date: 20080115
  Serious: Yes (Hospitalization)
  Sender: FDA-Public Use
  Company Number: ES-ELI_LILLY_AND_COMPANY-ES200707005575

PATIENT
  Age: 72 Year
  Sex: Female

DRUGS (6)
  1. FORTEO [Suspect]
     Indication: OSTEOPOROSIS
     Dosage: 20 UG, DAILY (1/D)
     Route: 058
     Dates: start: 20070501, end: 20070703
  2. ZAMENE [Concomitant]
  3. FLAGYL [Concomitant]
  4. PARACETAMOL [Concomitant]
  5. NOLOTIL [Concomitant]
  6. OMEPRAZOLE [Concomitant]

REACTIONS (2)
  - ILEUS PARALYTIC [None]
  - RENAL COLIC [None]
